FAERS Safety Report 6087683-8 (Version None)
Quarter: 2009Q1

REPORT INFORMATION
  Report Type: 
  Country: None (occurrence: None)
  Receive Date: 20090223
  Receipt Date: 20090209
  Transmission Date: 20090719
  Serious: Yes (Death, Other)
  Sender: FDA-Public Use
  Company Number: EG-ROCHE-611042

PATIENT
  Sex: Male

DRUGS (2)
  1. PEGASYS [Suspect]
     Route: 065
     Dates: start: 20081217, end: 20081231
  2. VIRIN [Concomitant]
     Route: 065
     Dates: start: 20081217, end: 20081231

REACTIONS (9)
  - ANAEMIA [None]
  - DEATH [None]
  - ENZYME ABNORMALITY [None]
  - EPISTAXIS [None]
  - GINGIVAL BLEEDING [None]
  - HAEMORRHAGE [None]
  - JAUNDICE [None]
  - MULTI-ORGAN FAILURE [None]
  - THROMBOCYTOPENIA [None]
